FAERS Safety Report 8792404 (Version 1)
Quarter: 2012Q4

REPORT INFORMATION
  Report Type: 
  Country: US (occurrence: US)
  Receive Date: 20120918
  Receipt Date: 20120918
  Transmission Date: 20130627
  Serious: No
  Sender: FDA-Public Use
  Company Number: US-PFIZER INC-2012225926

PATIENT
  Age: 40 Year
  Sex: Female
  Weight: 82.54 kg

DRUGS (11)
  1. GENOTROPIN MQ [Suspect]
     Dosage: 0.2 mg, 1x/day
     Route: 058
  2. GENOTROPIN MQ [Suspect]
     Dosage: 0.4 mg, 1x/day
     Route: 058
  3. VITAMIN D [Concomitant]
     Dosage: 1000 IU, UNK
  4. OXYCONTIN [Concomitant]
     Dosage: 10 mg, UNK
  5. DIAZEPAM [Concomitant]
     Dosage: 10 mg, UNK
  6. SOMA [Concomitant]
     Dosage: 350 mg, UNK
  7. FIBRE, DIETARY [Concomitant]
     Dosage: UNK
  8. MAGNESIUM [Concomitant]
     Dosage: 30 mg, UNK
  9. CLONIDINE [Concomitant]
     Dosage: 0.1 mg, UNK
  10. L-TRYPTOPHANE [Concomitant]
     Dosage: 500 mg, UNK
  11. MELATONIN [Concomitant]
     Dosage: 1 mg, UNK

REACTIONS (1)
  - Laboratory test abnormal [Unknown]
